FAERS Safety Report 8362241-0 (Version None)
Quarter: 2012Q2

REPORT INFORMATION
  Report Type: 
  Country: None (occurrence: None)
  Receive Date: 20120515
  Receipt Date: 20120509
  Transmission Date: 20120825
  Serious: Yes (Hospitalization, Other)
  Sender: FDA-Public Use
  Company Number: US-BAYER-2012-018053

PATIENT
  Age: 22 Year
  Sex: Female
  Weight: 77.098 kg

DRUGS (8)
  1. YAZ [Suspect]
     Dosage: UNK
     Dates: start: 20080616, end: 20101028
  2. TYLENOL (CAPLET) [Concomitant]
     Dosage: UNK UNK, PRN
  3. ASCORBIC ACID [Concomitant]
  4. SYNTHROID [Concomitant]
     Indication: HYPOTHYROIDISM
     Dosage: UNK
     Dates: start: 20100101
  5. POTASSIUM CHLORIDE [Concomitant]
     Dosage: UNK
     Dates: start: 20100101
  6. NEXIUM [Concomitant]
     Dosage: UNK
     Dates: start: 20100601
  7. PERCOCET [Concomitant]
     Dosage: UNK
     Dates: start: 20100101
  8. IBUPROFEN (ADVIL) [Concomitant]
     Dosage: PRN

REACTIONS (3)
  - PANCREATITIS [None]
  - GALLBLADDER DISORDER [None]
  - CHOLECYSTITIS CHRONIC [None]
